FAERS Safety Report 11484062 (Version 2)
Quarter: 2015Q3

REPORT INFORMATION
  Report Type: Spontaneous
  Country: US (occurrence: US)
  Receive Date: 20150903
  Receipt Date: 20150903
  Transmission Date: 20151125
  Serious: No
  Sender: FDA-Public Use
  Company Number: US-ELI_LILLY_AND_COMPANY-US201205002456

PATIENT
  Age: 57 Year
  Sex: Female

DRUGS (5)
  1. GAS-X [Concomitant]
     Active Substance: DIMETHICONE
  2. CYMBALTA [Suspect]
     Active Substance: DULOXETINE HYDROCHLORIDE
     Indication: BACK PAIN
     Dosage: 30 MG, QD
     Dates: start: 20120502
  3. CALCIUM MAGNESIUM [Interacting]
     Active Substance: CALCIUM\MAGNESIUM
  4. TUMS [Concomitant]
     Active Substance: CALCIUM CARBONATE
  5. ZANTAC [Concomitant]
     Active Substance: RANITIDINE HYDROCHLORIDE

REACTIONS (3)
  - Abdominal pain upper [Unknown]
  - Drug interaction [Unknown]
  - Diarrhoea [Recovered/Resolved]

NARRATIVE: CASE EVENT DATE: 201205
